FAERS Safety Report 12983438 (Version 1)
Quarter: 2016Q4

REPORT INFORMATION
  Report Type: Report from Study
  Country: IT (occurrence: IT)
  Receive Date: 20161129
  Receipt Date: 20161129
  Transmission Date: 20170207
  Serious: Yes (Other)
  Sender: FDA-Public Use
  Company Number: IT-GILEAD-2016-0244729

PATIENT
  Age: 48 Year
  Sex: Male
  Weight: 78 kg

DRUGS (6)
  1. RILPIVIRINE [Concomitant]
     Active Substance: RILPIVIRINE
  2. BISOPROLOL FUMARATE. [Concomitant]
     Active Substance: BISOPROLOL FUMARATE
  3. ALLOPURINOL. [Concomitant]
     Active Substance: ALLOPURINOL
  4. DIBASE [Concomitant]
     Active Substance: CHOLECALCIFEROL
  5. RAMIPRIL. [Concomitant]
     Active Substance: RAMIPRIL
  6. EMTRICITABINE/TENOFOVIR DISOPROXIL FUMARATE [Suspect]
     Active Substance: EMTRICITABINE\TENOFOVIR DISOPROXIL FUMARATE
     Indication: HIV INFECTION
     Dosage: 1 DF, QOD
     Route: 065
     Dates: start: 20161119

REACTIONS (1)
  - Chronic kidney disease [Not Recovered/Not Resolved]
